FAERS Safety Report 13524986 (Version 1)
Quarter: 2017Q2

REPORT INFORMATION
  Report Type: Spontaneous
  Country: US (occurrence: US)
  Receive Date: 20170508
  Receipt Date: 20170508
  Transmission Date: 20170830
  Serious: No
  Sender: FDA-Public Use
  Company Number: US-ROCHE-1129504

PATIENT
  Sex: Female

DRUGS (5)
  1. EVISTA [Concomitant]
     Active Substance: RALOXIFENE HYDROCHLORIDE
  2. DOXIL [Concomitant]
     Active Substance: DOXORUBICIN HYDROCHLORIDE
  3. AVASTIN [Suspect]
     Active Substance: BEVACIZUMAB
     Indication: BREAST CANCER FEMALE
     Route: 065
  4. ABRAXANE [Concomitant]
     Active Substance: PACLITAXEL
  5. FASLODEX [Concomitant]
     Active Substance: FULVESTRANT

REACTIONS (1)
  - Carcinoembryonic antigen increased [Unknown]
